FAERS Safety Report 5856979-4 (Version None)
Quarter: 2008Q3

REPORT INFORMATION
  Report Type: 
  Country: None (occurrence: None)
  Receive Date: 20080825
  Receipt Date: 20080819
  Transmission Date: 20090109
  Serious: Yes (Other)
  Sender: FDA-Public Use
  Company Number: NL-BOEHRINGER INGELHEIM GMBH, GERMANY-2008-BP-12982RO

PATIENT
  Age: 65 Year
  Sex: Female

DRUGS (3)
  1. FLUTICASONE PROPIONATE [Suspect]
     Indication: RHINITIS ALLERGIC
     Route: 045
  2. FAMOTIDINE [Concomitant]
  3. ALENDRONATE SODIUM [Concomitant]

REACTIONS (2)
  - DIZZINESS [None]
  - HAEMATOMA [None]
